FAERS Safety Report 4338258-X (Version None)
Quarter: 2004Q2

REPORT INFORMATION
  Report Type: 
  Country: None (occurrence: None)
  Receive Date: 20040413
  Receipt Date: 20040413
  Transmission Date: 20050107
  Serious: Yes (Life-Threatening, Hospitalization)
  Sender: FDA-Public Use
  Company Number: None

PATIENT
  Age: 64 Year
  Sex: Male
  Weight: 102.0593 kg

DRUGS (2)
  1. UROXATRAL [Suspect]
     Indication: BENIGN PROSTATIC HYPERPLASIA
     Dosage: ONE QD ORAL
     Route: 048
     Dates: start: 20040408, end: 20040408
  2. UROXATRAL [Suspect]
     Indication: DYSURIA
     Dosage: ONE QD ORAL
     Route: 048
     Dates: start: 20040408, end: 20040408

REACTIONS (2)
  - BLOOD PRESSURE DECREASED [None]
  - CIRCULATORY COLLAPSE [None]
